FAERS Safety Report 10828694 (Version 1)
Quarter: 2015Q1

REPORT INFORMATION
  Report Type: Report from Study
  Country: PR (occurrence: PR)
  Receive Date: 20150219
  Receipt Date: 20150219
  Transmission Date: 20150721
  Serious: Yes (Other)
  Sender: FDA-Public Use
  Company Number: PR-ABBVIE-14P-131-1232073-00

PATIENT
  Sex: Female

DRUGS (1)
  1. HUMIRA [Suspect]
     Active Substance: ADALIMUMAB
     Indication: RHEUMATOID ARTHRITIS
     Route: 058
     Dates: end: 20130429

REACTIONS (2)
  - Vaginal cancer [Not Recovered/Not Resolved]
  - Decreased immune responsiveness [Unknown]

NARRATIVE: CASE EVENT DATE: 2013
